FAERS Safety Report 25035849 (Version 1)
Quarter: 2025Q1

REPORT INFORMATION
  Report Type: Spontaneous
  Country: US (occurrence: None)
  Receive Date: 20250304
  Receipt Date: 20250304
  Transmission Date: 20250409
  Serious: Yes (Hospitalization)
  Sender: FDA-CTU
  Company Number: None

PATIENT
  Age: 83 Year
  Sex: Female
  Weight: 66.3 kg

DRUGS (3)
  1. DARATUMUMAB\HYALURONIDASE-FIHJ [Suspect]
     Active Substance: DARATUMUMAB\HYALURONIDASE-FIHJ
  2. DEXAMETHASONE [Suspect]
     Active Substance: DEXAMETHASONE
  3. LENALIDOMIDE [Suspect]
     Active Substance: LENALIDOMIDE

REACTIONS (10)
  - Syncope [None]
  - Headache [None]
  - Fatigue [None]
  - Asthenia [None]
  - Dyspnoea [None]
  - Pollakiuria [None]
  - Dehydration [None]
  - Radiculopathy [None]
  - Lumbar vertebral fracture [None]
  - Thoracic vertebral fracture [None]

NARRATIVE: CASE EVENT DATE: 20240123
